FAERS Safety Report 15611884 (Version 2)
Quarter: 2019Q1

REPORT INFORMATION
  Report Type: Report from Study
  Country: US (occurrence: US)
  Receive Date: 20181113
  Receipt Date: 20190315
  Transmission Date: 20190417
  Serious: No
  Sender: FDA-Public Use
  Company Number: US-SA-2018SA304393

PATIENT
  Age: 56 Year
  Sex: Male

DRUGS (2)
  1. VANDETANIB. [Suspect]
     Active Substance: VANDETANIB
     Dosage: 200 MG
     Route: 048
     Dates: start: 20110929
  2. VANDETANIB. [Suspect]
     Active Substance: VANDETANIB
     Indication: THYROID CANCER
     Dosage: 200 MG, QD (TAKES 2 TABLETS BY MOUTH)
     Route: 048
     Dates: start: 20170310, end: 20181029

REACTIONS (3)
  - Diarrhoea [Recovered/Resolved]
  - Abdominal discomfort [Unknown]
  - Dyshidrotic eczema [Unknown]
